FAERS Safety Report 4571921-4 (Version None)
Quarter: 2005Q1

REPORT INFORMATION
  Report Type: 
  Country: None (occurrence: None)
  Receive Date: 20050203
  Receipt Date: 20050203
  Transmission Date: 20050727
  Serious: Yes (Life-Threatening)
  Sender: FDA-Public Use
  Company Number: None

PATIENT
  Age: 51 Year
  Sex: Female
  Weight: 51.2565 kg

DRUGS (2)
  1. STRATTERA [Suspect]
     Indication: ATTENTION DEFICIT/HYPERACTIVITY DISORDER
     Dosage: 80 MG PO QD
     Route: 048
  2. SYNTHROID [Concomitant]

REACTIONS (8)
  - ARTHRALGIA [None]
  - COMA [None]
  - CONFUSIONAL STATE [None]
  - COORDINATION ABNORMAL [None]
  - GRAND MAL CONVULSION [None]
  - NAUSEA [None]
  - PYREXIA [None]
  - VOMITING [None]
